FAERS Safety Report 7994316-X (Version None)
Quarter: 2011Q4

REPORT INFORMATION
  Report Type: 
  Country: None (occurrence: None)
  Receive Date: 20111220
  Receipt Date: 20110328
  Transmission Date: 20120403
  Serious: Yes (Death, Other)
  Sender: FDA-Public Use
  Company Number: AN-BAYER-2011-012649

PATIENT
  Sex: Male

DRUGS (2)
  1. NEXAVAR [Suspect]
  2. NEXAVAR [Suspect]
     Dosage: 25% LOWER DOSE
     Route: 048

REACTIONS (7)
  - ATRIAL FIBRILLATION [None]
  - THYROIDITIS [None]
  - HYPERTHYROIDISM [None]
  - BLOOD THYROID STIMULATING HORMONE INCREASED [None]
  - HYPOTHYROIDISM [None]
  - HEPATIC NEOPLASM MALIGNANT [None]
  - SKIN TOXICITY [None]
